FAERS Safety Report 12493611 (Version 6)
Quarter: 2019Q2

REPORT INFORMATION
  Report Type: Spontaneous
  Country: BR (occurrence: BR)
  Receive Date: 20160623
  Receipt Date: 20190626
  Transmission Date: 20190711
  Serious: Yes (Other)
  Sender: FDA-Public Use
  Company Number: BR-REGENERON PHARMACEUTICALS, INC.-2016-18571

PATIENT

DRUGS (3)
  1. POVIDONE [Concomitant]
     Active Substance: POVIDONE
     Indication: PROPHYLAXIS
  2. VIGAMOX [Concomitant]
     Active Substance: MOXIFLOXACIN HYDROCHLORIDE
     Indication: ANTIBIOTIC PROPHYLAXIS
  3. EYLEA [Suspect]
     Active Substance: AFLIBERCEPT
     Indication: NEOVASCULAR AGE-RELATED MACULAR DEGENERATION
     Dosage: INJECTION PRIOR TO THE EVENT (SINGLE ONE)
     Route: 031
     Dates: start: 20160527, end: 20160527

REACTIONS (9)
  - Ocular procedural complication [Recovered/Resolved]
  - Eye inflammation [Recovered/Resolved]
  - Multiple use of single-use product [Recovered/Resolved]
  - Visual acuity reduced [Unknown]
  - Uveitis [Recovered/Resolved]
  - Vitritis [Recovered/Resolved]
  - Syringe issue [Unknown]
  - Iridocyclitis [Recovered/Resolved]
  - Drug-device interaction [Unknown]

NARRATIVE: CASE EVENT DATE: 2016
